FAERS Safety Report 9034753 (Version 1)
Quarter: 2013Q1

REPORT INFORMATION
  Report Type: Spontaneous
  Country: US (occurrence: None)
  Receive Date: 20130116
  Receipt Date: 20130116
  Transmission Date: 20140127
  Serious: No
  Sender: FDA-Public Use
  Company Number: None

PATIENT
  Age: 55 Year
  Sex: 0
  Weight: 68.04 kg

DRUGS (2)
  1. RISING DENTA 5000 PLUS [Suspect]
  2. CYPRESS 5000 PLUS [Suspect]

REACTIONS (2)
  - Drug ineffective [None]
  - Product quality issue [None]
